FAERS Safety Report 19626141 (Version 1)
Quarter: 2021Q3

REPORT INFORMATION
  Report Type: Spontaneous
  Country: US (occurrence: US)
  Receive Date: 20210728
  Receipt Date: 20210728
  Transmission Date: 20211014
  Serious: No
  Sender: FDA-Public Use
  Company Number: None

PATIENT
  Age: 70 Year
  Sex: Female

DRUGS (1)
  1. TADALAFIL 20MG TAB 60/BO (DR.REDDY): [Suspect]
     Active Substance: TADALAFIL
     Indication: PULMONARY ARTERIAL HYPERTENSION
     Route: 048
     Dates: start: 20200220, end: 20210512

REACTIONS (2)
  - Hypokinesia [None]
  - Myalgia [None]

NARRATIVE: CASE EVENT DATE: 20210512
